FAERS Safety Report 21398061 (Version 3)
Quarter: 2022Q4

REPORT INFORMATION
  Report Type: Spontaneous
  Country: US (occurrence: US)
  Receive Date: 20220930
  Receipt Date: 20221003
  Transmission Date: 20230112
  Serious: Yes (Disabling)
  Sender: FDA-Public Use
  Company Number: US-SA-SAC20220923000926

PATIENT
  Age: 65 Year
  Sex: Female

DRUGS (1)
  1. DUPIXENT [Suspect]
     Active Substance: DUPILUMAB
     Indication: Dermatitis atopic
     Dosage: UNK UNK, 1X
     Route: 058
     Dates: start: 20220907, end: 20220907

REACTIONS (11)
  - Loss of personal independence in daily activities [Unknown]
  - Skin disorder [Unknown]
  - Skin discolouration [Not Recovered/Not Resolved]
  - Skin exfoliation [Not Recovered/Not Resolved]
  - Erythema [Not Recovered/Not Resolved]
  - Dermatitis atopic [Not Recovered/Not Resolved]
  - Injection site pain [Unknown]
  - Skin fissures [Unknown]
  - Pain of skin [Unknown]
  - Skin exfoliation [Unknown]
  - Gait inability [Unknown]

NARRATIVE: CASE EVENT DATE: 20220907
